FAERS Safety Report 7723784-3 (Version None)
Quarter: 2011Q3

REPORT INFORMATION
  Report Type: 
  Country: None (occurrence: None)
  Receive Date: 20110901
  Receipt Date: 20110819
  Transmission Date: 20111222
  Serious: Yes (Hospitalization)
  Sender: FDA-Public Use
  Company Number: PHHY2011FI74736

PATIENT
  Sex: Male

DRUGS (2)
  1. LAMISIL [Concomitant]
     Indication: TINEA PEDIS
     Dosage: UNK UKN, UNK
     Route: 003
     Dates: start: 20110524
  2. EXFORGE [Suspect]
     Dosage: 160/10 MG
     Route: 048

REACTIONS (3)
  - SKIN EXFOLIATION [None]
  - PRURITUS [None]
  - PAPULE [None]
